FAERS Safety Report 8362567-0 (Version None)
Quarter: 2012Q2

REPORT INFORMATION
  Report Type: 
  Country: None (occurrence: None)
  Receive Date: 20120516
  Receipt Date: 20120502
  Transmission Date: 20120825
  Serious: Yes (Other)
  Sender: FDA-Public Use
  Company Number: US-RB-038796-12

PATIENT
  Age: 44 Year
  Sex: Male

DRUGS (5)
  1. MUCINEX [Suspect]
     Dosage: TOOK DRUG FOR ABOUT A WEEK IN DEC-2011
     Route: 048
     Dates: start: 20111201
  2. MUCINEX [Suspect]
     Indication: RESPIRATORY TRACT CONGESTION
     Dosage: TOOK 1 TABLET ON EITHER 16-APR-2012 AND 17-APR-2012.
     Route: 048
     Dates: start: 20120401
  3. MUCINEX [Suspect]
     Route: 048
     Dates: start: 20120421
  4. DIOVAN [Concomitant]
     Indication: HYPERTENSION
     Route: 048
     Dates: start: 20111201
  5. LIPITOR [Concomitant]
     Indication: HYPERTENSION
     Route: 048
     Dates: start: 20111201

REACTIONS (7)
  - SOMNOLENCE [None]
  - FATIGUE [None]
  - TACHYCARDIA [None]
  - AGITATION [None]
  - NASAL DRYNESS [None]
  - ANXIETY [None]
  - BLOOD PRESSURE INCREASED [None]
